FAERS Safety Report 24412433 (Version 1)
Quarter: 2024Q4

REPORT INFORMATION
  Report Type: Spontaneous
  Country: RU (occurrence: RU)
  Receive Date: 20241008
  Receipt Date: 20241008
  Transmission Date: 20250114
  Serious: Yes (Hospitalization, Other)
  Sender: ALEXION PHARMACEUTICALS
  Company Number: RU-ASTRAZENECA-202409RUS012580RU

PATIENT
  Age: 46 Year

DRUGS (2)
  1. SYMBICORT [Suspect]
     Active Substance: BUDESONIDE\FORMOTEROL FUMARATE DIHYDRATE
     Indication: Chronic obstructive pulmonary disease
     Dosage: 160/4.5 MCG
  2. ACLIDINIUM BROMIDE [Suspect]
     Active Substance: ACLIDINIUM BROMIDE
     Indication: Chronic obstructive pulmonary disease
     Dosage: 322 MICROGRAM

REACTIONS (8)
  - Dyspnoea [Unknown]
  - Cough [Unknown]
  - Alpha-1 antitrypsin deficiency [Unknown]
  - Oxygen saturation decreased [Unknown]
  - Obstructive airways disorder [Unknown]
  - Emphysema [Unknown]
  - Cystic lung disease [Unknown]
  - Bronchitis chronic [Unknown]
